FAERS Safety Report 5621305-2 (Version None)
Quarter: 2008Q1

REPORT INFORMATION
  Report Type: 
  Country: None (occurrence: None)
  Receive Date: 20080211
  Receipt Date: 20080129
  Transmission Date: 20080703
  Serious: Yes (Hospitalization, Other)
  Sender: FDA-Public Use
  Company Number: US-BAYER-US-2007-036208

PATIENT
  Age: 52 Year
  Sex: Female
  Weight: 77 kg

DRUGS (26)
  1. BETASERON [Suspect]
     Indication: RELAPSING-REMITTING MULTIPLE SCLEROSIS
     Dosage: TOTAL DAILY DOSE: 8 MIU
     Route: 058
     Dates: start: 19910101, end: 20060201
  2. ASPIRIN [Concomitant]
     Dosage: TOTAL DAILY DOSE: 325 MG
  3. GABAPENTIN [Concomitant]
     Dosage: TOTAL DAILY DOSE: 600 MG
  4. HYDROCHLOROTHIAZIDE [Concomitant]
     Dosage: TOTAL DAILY DOSE: 12.5 MG
  5. SENOKOT [Concomitant]
  6. NOVOLOG [Concomitant]
  7. LANTUS [Concomitant]
     Indication: DIABETES MELLITUS
     Dosage: TOTAL DAILY DOSE: 18 IU
     Route: 058
     Dates: start: 20060309
  8. SIMVASTATIN [Concomitant]
  9. SERTRALINE [Concomitant]
     Dosage: TOTAL DAILY DOSE: 200 MG
  10. AVAPRO [Concomitant]
     Dosage: TOTAL DAILY DOSE: 150 MG
  11. ZOLOFT [Concomitant]
     Indication: DEPRESSION
     Dosage: TOTAL DAILY DOSE: 150 MG
  12. COZAAR [Concomitant]
     Indication: HYPERTENSION
     Dosage: TOTAL DAILY DOSE: 100 MG
     Route: 048
  13. HUMALOG [Concomitant]
     Indication: DIABETES MELLITUS
  14. LYRICA [Concomitant]
     Dosage: TOTAL DAILY DOSE: 450 MG
  15. NITROGLYCERIN [Concomitant]
     Indication: CHEST DISCOMFORT
     Route: 060
  16. LIPITOR [Concomitant]
     Indication: HYPERLIPIDAEMIA
     Dosage: TOTAL DAILY DOSE: 10  MG
     Route: 048
  17. NEURONTIN [Concomitant]
     Dosage: TOTAL DAILY DOSE: 900 MG
     Route: 048
  18. ZOCOR [Concomitant]
     Dosage: TOTAL DAILY DOSE: 20 MG
     Route: 048
     Dates: start: 20060309
  19. INSULIN GLARGINE [Concomitant]
     Dosage: TOTAL DAILY DOSE: 12 IU
     Route: 058
  20. ALBUTEROL [Concomitant]
     Route: 055
  21. METOPROLOL TARTRATE [Concomitant]
     Indication: HYPERTENSION
     Dosage: TOTAL DAILY DOSE: 100 MG
     Route: 048
     Dates: start: 20060309
  22. AMPICILLIN [Concomitant]
     Indication: CENTRAL NERVOUS SYSTEM INFECTION
     Dosage: TOTAL DAILY DOSE: 12 G
     Route: 042
  23. CEFTRIAXONE [Concomitant]
     Dosage: TOTAL DAILY DOSE: 4 G
     Route: 042
  24. DILTIAZEM [Concomitant]
     Indication: HYPERTENSION
     Dosage: TOTAL DAILY DOSE: 60 MG
     Route: 048
     Dates: start: 20060309
  25. MICONAZOLE 2 % [Concomitant]
     Route: 061
     Dates: start: 20060309
  26. DETROL LA [Concomitant]
     Indication: BLADDER DISORDER
     Dosage: TOTAL DAILY DOSE: 4 MG
     Route: 048

REACTIONS (20)
  - BLOOD GLUCOSE INCREASED [None]
  - COMA [None]
  - CONVULSION [None]
  - CORONARY ARTERY DISEASE [None]
  - DEHYDRATION [None]
  - DEPRESSED LEVEL OF CONSCIOUSNESS [None]
  - DIABETIC KETOACIDOSIS [None]
  - DIABETIC NEUROPATHY [None]
  - DYSPHAGIA [None]
  - ENCEPHALOPATHY [None]
  - HEPATIC ENZYME INCREASED [None]
  - LARYNGEAL OEDEMA [None]
  - LOSS OF CONSCIOUSNESS [None]
  - MASTITIS [None]
  - MENTAL STATUS CHANGES [None]
  - RENAL FAILURE ACUTE [None]
  - RHABDOMYOLYSIS [None]
  - STRIDOR [None]
  - TONIC CLONIC MOVEMENTS [None]
  - VENTRICULAR TACHYCARDIA [None]
